FAERS Safety Report 20954958 (Version 1)
Quarter: 2022Q2

REPORT INFORMATION
  Report Type: Spontaneous
  Country: US (occurrence: US)
  Receive Date: 20220614
  Receipt Date: 20220614
  Transmission Date: 20220720
  Serious: No
  Sender: FDA-Public Use
  Company Number: US-BRISTOL-MYERS SQUIBB COMPANY-2022-044263

PATIENT
  Age: 62 Year
  Sex: Male

DRUGS (1)
  1. REBLOZYL [Suspect]
     Active Substance: LUSPATERCEPT-AAMT
     Indication: Myelodysplastic syndrome
     Dosage: DOSE : CANNOT PROVIDE;     FREQ : CANNOT PROVIDE
     Route: 058

REACTIONS (2)
  - Extramedullary haemopoiesis [Unknown]
  - Sideroblastic anaemia [Unknown]
